FAERS Safety Report 11204947 (Version 2)
Quarter: 2015Q3

REPORT INFORMATION
  Report Type: Spontaneous
  Country: CN (occurrence: None)
  Receive Date: 20150617
  Receipt Date: 20150701
  Transmission Date: 20151125
  Serious: Yes (Hospitalization, Other)
  Sender: FDA-Public Use
  Company Number: CN2015GSK083173

PATIENT
  Age: 50 Year
  Sex: Male
  Weight: 60 kg

DRUGS (1)
  1. HEPTODIN [Suspect]
     Active Substance: LAMIVUDINE
     Indication: HEPATITIS B
     Route: 048
     Dates: start: 201007

REACTIONS (6)
  - Suspected counterfeit product [None]
  - Condition aggravated [None]
  - Viral load increased [None]
  - Splenomegaly [None]
  - Hepatic pain [None]
  - Haematemesis [None]

NARRATIVE: CASE EVENT DATE: 20150605
